FAERS Safety Report 8968373 (Version 2)
Quarter: 2014Q1

REPORT INFORMATION
  Report Type: Spontaneous
  Country: AU (occurrence: None)
  Receive Date: 20121207
  Receipt Date: 20140203
  Transmission Date: 20141002
  Serious: Yes (Life-Threatening)
  Sender: FDA-Public Use
  Company Number: 2012AU007245

PATIENT
  Age: 80 Year
  Sex: Male

DRUGS (3)
  1. ALOXI [Suspect]
     Indication: PROPHYLAXIS OF NAUSEA AND VOMITING
     Dosage: SINGLE
     Route: 042
     Dates: start: 20120731, end: 20120907
  2. CYCLOPHOSPHAMIDE (CYCLOPHOSPHAMIDE) [Suspect]
     Indication: POLYCHONDRITIS
     Dosage: SINGLE
     Route: 042
     Dates: start: 20120731, end: 20120907
  3. CYCLOPHOSPHAMIDE (CYCLOPHOSPHAMIDE) [Suspect]
     Indication: DISEASE RECURRENCE
     Dosage: SINGLE
     Route: 042
     Dates: start: 20120731, end: 20120907

REACTIONS (3)
  - Anaphylactic reaction [None]
  - Eye irritation [None]
  - Ocular hyperaemia [None]
